FAERS Safety Report 14766394 (Version 1)
Quarter: 2018Q2

REPORT INFORMATION
  Report Type: Spontaneous
  Country: US (occurrence: US)
  Receive Date: 20180416
  Receipt Date: 20180416
  Transmission Date: 20180711
  Serious: Yes (Other)
  Sender: FDA-Public Use
  Company Number: US-ANIPHARMA-2018-US-006039

PATIENT
  Sex: Female
  Weight: 95.25 kg

DRUGS (6)
  1. VITAMIN D [Concomitant]
     Active Substance: CHOLECALCIFEROL
  2. VITAMIN C [Concomitant]
     Active Substance: ASCORBIC ACID
  3. ACIDOPHILUS [Concomitant]
     Active Substance: LACTOBACILLUS ACIDOPHILUS
  4. TUMERIC [Concomitant]
     Active Substance: HERBALS\TURMERIC
  5. ANASTROZOLE. [Suspect]
     Active Substance: ANASTROZOLE
     Dates: start: 201411, end: 201604
  6. LIPITOR [Concomitant]
     Active Substance: ATORVASTATIN CALCIUM
     Dosage: 20MG ONCE DAILY
     Route: 048

REACTIONS (4)
  - Arthralgia [Recovered/Resolved]
  - Pain [Recovered/Resolved]
  - Breast cancer metastatic [Unknown]
  - Drug ineffective [Unknown]
